FAERS Safety Report 8911502 (Version 1)
Quarter: 2012Q4

REPORT INFORMATION
  Report Type: 
  Country: IL (occurrence: IL)
  Receive Date: 20121116
  Receipt Date: 20121116
  Transmission Date: 20130627
  Serious: Yes (Other)
  Sender: FDA-Public Use
  Company Number: IL-JNJFOC-20121103196

PATIENT
  Age: 59 Year
  Sex: Female

DRUGS (1)
  1. SIMPONI [Suspect]
     Indication: JOINT STIFFNESS
     Route: 058
     Dates: start: 20120812

REACTIONS (2)
  - Neoplasm [Unknown]
  - Off label use [Unknown]
